FAERS Safety Report 8886192 (Version 1)
Quarter: 2012Q4

REPORT INFORMATION
  Report Type: 
  Country: GB (occurrence: GB)
  Receive Date: 20121105
  Receipt Date: 20121105
  Transmission Date: 20130627
  Serious: Yes (Other)
  Sender: FDA-Public Use
  Company Number: GB-JNJFOC-20121016660

PATIENT
  Age: 24 Year
  Sex: Male
  Weight: 68 kg

DRUGS (3)
  1. KETOCONAZOLE [Suspect]
     Route: 065
  2. KETOCONAZOLE [Suspect]
     Indication: PRODUCT USED FOR UNKNOWN INDICATION
     Route: 065
  3. FEXOFENADINE HYDROCHLORIDE [Interacting]
     Indication: SEASONAL ALLERGY
     Route: 048

REACTIONS (4)
  - Depression [Recovered/Resolved]
  - Drug interaction [Unknown]
  - Feeling abnormal [Unknown]
  - Nervousness [Recovered/Resolved]
